FAERS Safety Report 11897384 (Version 1)
Quarter: 2016Q1

REPORT INFORMATION
  Report Type: Spontaneous
  Country: US (occurrence: US)
  Receive Date: 20160108
  Receipt Date: 20160108
  Transmission Date: 20160526
  Serious: Yes (Hospitalization)
  Sender: FDA-Public Use
  Company Number: US-BEH-2015057105

PATIENT
  Age: 91 Year
  Sex: Female
  Weight: 82 kg

DRUGS (33)
  1. HIZENTRA [Suspect]
     Active Substance: HUMAN IMMUNOGLOBULIN G
     Indication: IMMUNODEFICIENCY COMMON VARIABLE
     Route: 058
     Dates: start: 20140528
  2. ROPINIROLE. [Concomitant]
     Active Substance: ROPINIROLE
  3. ASPIRIN. [Concomitant]
     Active Substance: ASPIRIN
  4. IRONUP [Concomitant]
  5. LOPRESSOR [Concomitant]
     Active Substance: METOPROLOL TARTRATE
  6. PREDNISONE. [Concomitant]
     Active Substance: PREDNISONE
  7. FLONASE [Concomitant]
     Active Substance: FLUTICASONE PROPIONATE
  8. TYLENOL [Concomitant]
     Active Substance: ACETAMINOPHEN
  9. LMX [Concomitant]
     Active Substance: LIDOCAINE
  10. PROTONIX [Concomitant]
     Active Substance: PANTOPRAZOLE SODIUM
  11. VITAMIN B [Concomitant]
     Active Substance: VITAMIN B
  12. DOCUSATE [Concomitant]
     Active Substance: DOCUSATE
  13. MIRALAX [Concomitant]
     Active Substance: POLYETHYLENE GLYCOL 3350
  14. EPIPEN [Concomitant]
     Active Substance: EPINEPHRINE
  15. KLOR-CON [Concomitant]
     Active Substance: POTASSIUM CHLORIDE
  16. FLOMAX [Concomitant]
     Active Substance: TAMSULOSIN HYDROCHLORIDE
  17. VITAMIN B12 [Concomitant]
     Active Substance: CYANOCOBALAMIN
  18. BUMETANIDE. [Concomitant]
     Active Substance: BUMETANIDE
  19. LEVEMIR [Concomitant]
     Active Substance: INSULIN DETEMIR
  20. GRASLISE [Concomitant]
  21. DOXAZOSIN [Concomitant]
     Active Substance: DOXAZOSIN\DOXAZOSIN MESYLATE
  22. NOVOLOG [Concomitant]
     Active Substance: INSULIN ASPART
  23. PLAVIX [Concomitant]
     Active Substance: CLOPIDOGREL BISULFATE
  24. LEVAQUIN [Concomitant]
     Active Substance: LEVOFLOXACIN
  25. PROBIOTIC [Concomitant]
     Active Substance: PROBIOTICS NOS
  26. ZYRTEC [Concomitant]
     Active Substance: CETIRIZINE HYDROCHLORIDE
  27. PROAIR HFA [Concomitant]
     Active Substance: ALBUTEROL SULFATE
  28. SINGULAIR [Concomitant]
     Active Substance: MONTELUKAST SODIUM
  29. PRESERVISION [Concomitant]
     Active Substance: MINERALS\VITAMINS
  30. DIGOXIN. [Concomitant]
     Active Substance: DIGOXIN
  31. DOXYCYCLINE. [Concomitant]
     Active Substance: DOXYCYCLINE
  32. ASMANEX [Concomitant]
     Active Substance: MOMETASONE FUROATE
  33. DUONEB [Concomitant]
     Active Substance: ALBUTEROL SULFATE\IPRATROPIUM BROMIDE

REACTIONS (1)
  - Lung disorder [Recovered/Resolved]

NARRATIVE: CASE EVENT DATE: 20151211
